FAERS Safety Report 5457433-4 (Version None)
Quarter: 2007Q3

REPORT INFORMATION
  Report Type: 
  Country: None (occurrence: None)
  Receive Date: 20070918
  Receipt Date: 20070907
  Transmission Date: 20080115
  Serious: Yes (Hospitalization)
  Sender: FDA-Public Use
  Company Number: ID-GILEAD-2007-0013172

PATIENT
  Sex: Male

DRUGS (11)
  1. EMTRICITABINE/TENOFOVIR DISOPROXIL FUMARATE [Suspect]
     Indication: HIV INFECTION
     Route: 048
     Dates: start: 20060531
  2. KALETRA [Suspect]
     Indication: HIV INFECTION
     Route: 048
     Dates: start: 20060531, end: 20070611
  3. METHYLPREDNISOLONE [Concomitant]
     Dates: start: 20070321
  4. MYCOPHENOLATE MOFETIL [Concomitant]
     Dates: start: 20070503, end: 20070612
  5. HP-PRO [Concomitant]
     Dates: start: 20070414
  6. VITAMIN D [Concomitant]
     Dates: start: 20070414
  7. METHYCOBALT [Concomitant]
     Dates: start: 20070323
  8. WARFARIN SODIUM [Concomitant]
     Dates: start: 20070417
  9. GLIMEPIRIDE [Concomitant]
     Dates: start: 20070502
  10. POTASSIUM CHLORIDE [Concomitant]
     Route: 048
     Dates: start: 20070501
  11. POTASSIUM CHLORIDE [Concomitant]
     Route: 042
     Dates: start: 20070430

REACTIONS (4)
  - DECREASED APPETITE [None]
  - DIARRHOEA [None]
  - PYREXIA [None]
  - VOMITING [None]
